FAERS Safety Report 16218685 (Version 1)
Quarter: 2019Q2

REPORT INFORMATION
  Report Type: Spontaneous
  Country: IT (occurrence: IT)
  Receive Date: 20190419
  Receipt Date: 20190419
  Transmission Date: 20190711
  Serious: Yes (Other)
  Sender: FDA-Public Use
  Company Number: IT-TEVA-2019-IT-1038140

PATIENT
  Age: 73 Year
  Sex: Female

DRUGS (7)
  1. HUMULIN NOS [Suspect]
     Active Substance: INSULIN HUMAN
     Indication: DIABETES MELLITUS
     Route: 058
     Dates: start: 20170101, end: 20171231
  2. GLIMEPIRIDE. [Suspect]
     Active Substance: GLIMEPIRIDE
     Indication: DIABETES MELLITUS
     Dosage: 4 MILLIGRAM DAILY;
     Route: 048
     Dates: start: 20170101, end: 20171231
  3. LANTUS [Suspect]
     Active Substance: INSULIN GLARGINE
     Indication: DIABETES MELLITUS
     Dosage: 16 IU (INTERNATIONAL UNIT) DAILY;
     Route: 058
     Dates: start: 20170101, end: 20171231
  4. METFORMIN [Concomitant]
     Active Substance: METFORMIN HYDROCHLORIDE
  5. TORVAST [Concomitant]
     Active Substance: ATORVASTATIN
  6. DILTIAZEM. [Concomitant]
     Active Substance: DILTIAZEM
  7. RAMIPRIL. [Concomitant]
     Active Substance: RAMIPRIL
     Route: 048

REACTIONS (3)
  - Asthenia [Recovering/Resolving]
  - Confusional state [Recovering/Resolving]
  - Dysarthria [Recovering/Resolving]

NARRATIVE: CASE EVENT DATE: 20180101
